FAERS Safety Report 20406721 (Version 1)
Quarter: 2022Q1

REPORT INFORMATION
  Report Type: Report from Study
  Country: BR (occurrence: BR)
  Receive Date: 20220131
  Receipt Date: 20220131
  Transmission Date: 20220423
  Serious: Yes (Hospitalization, Other)
  Sender: FDA-Public Use
  Company Number: BR-TAKEDA-2021TUS076721

PATIENT
  Age: 59 Year
  Sex: Male
  Weight: 54.7 kg

DRUGS (2)
  1. MOBOCERTINIB [Suspect]
     Active Substance: MOBOCERTINIB
     Indication: Lung adenocarcinoma
     Dosage: 160 MILLIGRAM, QD
     Route: 065
     Dates: start: 20210204, end: 20210612
  2. MOBOCERTINIB [Suspect]
     Active Substance: MOBOCERTINIB
     Indication: Metastases to bone

REACTIONS (4)
  - Pneumonitis [Recovered/Resolved]
  - Pulmonary embolism [Recovered/Resolved]
  - Drug interaction [Unknown]
  - Inflammation [Recovered/Resolved]

NARRATIVE: CASE EVENT DATE: 20210612
